FAERS Safety Report 8035794-X (Version None)
Quarter: 2011Q4

REPORT INFORMATION
  Report Type: 
  Country: None (occurrence: None)
  Receive Date: 20111202
  Receipt Date: 20110928
  Transmission Date: 20120403
  Serious: Yes (Hospitalization)
  Sender: FDA-Public Use
  Company Number: PHEH2011US05387

PATIENT
  Sex: Male

DRUGS (2)
  1. CLOZARIL [Concomitant]
  2. FANAPT [Suspect]
     Indication: SCHIZOPHRENIA

REACTIONS (1)
  - PRIAPISM [None]
